FAERS Safety Report 13334850 (Version 1)
Quarter: 2017Q1

REPORT INFORMATION
  Report Type: Spontaneous
  Country: FR (occurrence: FR)
  Receive Date: 20170315
  Receipt Date: 20170315
  Transmission Date: 20170428
  Serious: Yes (Other)
  Sender: FDA-Public Use
  Company Number: FR-ROCHE-1905432

PATIENT
  Age: 69 Year
  Sex: Male

DRUGS (7)
  1. VANCOMYCINE SANDOZ [Concomitant]
     Active Substance: VANCOMYCIN
  2. CYMEVAN [Suspect]
     Active Substance: GANCICLOVIR
     Indication: CYTOMEGALOVIRUS VIRAEMIA
     Route: 042
     Dates: start: 20170208, end: 20170215
  3. NEFOPAM [Suspect]
     Active Substance: NEFOPAM
     Indication: PAIN
     Route: 042
     Dates: start: 20170115, end: 201702
  4. METHYLPREDNISOLONE MYLAN [Concomitant]
     Active Substance: METHYLPREDNISOLONE
  5. CELLCEPT [Concomitant]
     Active Substance: MYCOPHENOLATE MOFETIL\MYCOPHENOLATE MOFETIL HYDROCHLORIDE
     Route: 065
  6. PROGRAF [Concomitant]
     Active Substance: TACROLIMUS\TACROLIMUS ANHYDROUS
  7. INEXIUM [Concomitant]
     Active Substance: ESOMEPRAZOLE

REACTIONS (3)
  - Tremor [Recovered/Resolved]
  - Confusional state [Recovered/Resolved]
  - Disorientation [Recovered/Resolved]

NARRATIVE: CASE EVENT DATE: 20170215
